FAERS Safety Report 10361523 (Version 1)
Quarter: 2014Q3

REPORT INFORMATION
  Report Type: Spontaneous
  Country: US (occurrence: US)
  Receive Date: 20140805
  Receipt Date: 20140805
  Transmission Date: 20150326
  Serious: No
  Sender: FDA-Public Use
  Company Number: US-BIOGENIDEC-2014BI075749

PATIENT
  Age: 59 Year
  Sex: Female

DRUGS (1)
  1. AVONEX [Suspect]
     Active Substance: INTERFERON BETA-1A
     Indication: MULTIPLE SCLEROSIS
     Route: 030
     Dates: start: 20130204, end: 20140713

REACTIONS (4)
  - Headache [Unknown]
  - Chills [Unknown]
  - Feeling abnormal [Unknown]
  - Adverse reaction [Recovered/Resolved]

NARRATIVE: CASE EVENT DATE: 20130211
